FAERS Safety Report 15822401 (Version 3)
Quarter: 2019Q1

REPORT INFORMATION
  Report Type: Report from Study
  Country: CN (occurrence: CN)
  Receive Date: 20190114
  Receipt Date: 20190204
  Transmission Date: 20190417
  Serious: Yes (Life-Threatening, Hospitalization)
  Sender: FDA-Public Use
  Company Number: CN-AMGEN-CHNCT2019005397

PATIENT
  Age: 39 Year
  Sex: Male
  Weight: 53.6 kg

DRUGS (10)
  1. COMPOUND VITAMIN B [Concomitant]
     Dosage: 31.4 MG, UNK
     Route: 048
     Dates: start: 201802
  2. FOLIC ACID. [Concomitant]
     Active Substance: FOLIC ACID
     Dosage: 10 MG, UNK
     Route: 048
     Dates: start: 201802
  3. CINACALCET HCL [Suspect]
     Active Substance: CINACALCET HYDROCHLORIDE
     Indication: HYPERPARATHYROIDISM SECONDARY
     Dosage: 25 MG, UNK
     Route: 065
     Dates: start: 20180922
  4. LOW MOLECULAR WEIGHT HEPARIN, CALCIUM SALT [Concomitant]
     Dosage: 2000 UNK, UNK
     Route: 042
     Dates: start: 20181003
  5. SODIUM BICARBONATE. [Concomitant]
     Active Substance: SODIUM BICARBONATE
     Dosage: 0.5 G, UNK
     Route: 048
     Dates: start: 20181108, end: 20181212
  6. RECOMBINANT HUMAN ERYTHROPOIETIN [Concomitant]
     Active Substance: ERYTHROPOIETIN
     Dosage: 12000 UNK, UNK
     Route: 042
     Dates: start: 20180513
  7. FILGRASTIM [Concomitant]
     Active Substance: FILGRASTIM
     Indication: GRANULOCYTOPENIA
     Dosage: 100 MUG, UNK
     Route: 058
     Dates: start: 20181108, end: 20190117
  8. CALCIUM W/VITAMIN D [Concomitant]
     Active Substance: CALCIUM\VITAMIN D
     Dosage: 750 MG, UNK
     Route: 048
     Dates: start: 2014
  9. VITAMIN C [Concomitant]
     Active Substance: ASCORBIC ACID
     Dosage: 50 MG, UNK
     Route: 048
     Dates: start: 201802
  10. CALCITRIOL. [Concomitant]
     Active Substance: CALCITRIOL
     Dosage: 0.25 MUG, QD
     Route: 048
     Dates: start: 20180513

REACTIONS (1)
  - Granulocytopenia [Recovered/Resolved]

NARRATIVE: CASE EVENT DATE: 20190110
